FAERS Safety Report 5886994-6 (Version None)
Quarter: 2008Q3

REPORT INFORMATION
  Report Type: 
  Country: None (occurrence: None)
  Receive Date: 20080917
  Receipt Date: 20080911
  Transmission Date: 20090109
  Serious: Yes (Hospitalization)
  Sender: FDA-Public Use
  Company Number: US-ROXANE LABORATORIES, INC.-2008-RO-00021RO

PATIENT
  Age: 69 Year
  Sex: Male

DRUGS (15)
  1. PREDNISONE TAB [Suspect]
     Indication: ARTHRITIS
     Dosage: 20MG
  2. METHOTREXATE [Suspect]
     Indication: ARTHRITIS
  3. ATENOLOL [Suspect]
  4. LISINOPRIL [Suspect]
  5. GLYBURIDE [Suspect]
  6. METFORMIN HCL [Suspect]
  7. LANSOPRAZOLE [Suspect]
  8. TRAMADOL HCL [Suspect]
  9. VANCOMYCIN HYDROCHLORIDE [Concomitant]
     Indication: SUPERINFECTION
  10. TRIMETHOPRIM + SULFAMETHOXAZOLE [Concomitant]
     Indication: NOCARDIOSIS
  11. ETHAMBUTOL HCL [Concomitant]
     Indication: MYCOBACTERIUM MARINUM INFECTION
  12. RIFAMPIN [Concomitant]
     Indication: MYCOBACTERIUM MARINUM INFECTION
  13. CLARITHROMYCIN [Concomitant]
     Indication: MYCOBACTERIUM MARINUM INFECTION
  14. DOXYCYCLINE [Concomitant]
     Indication: MYCOBACTERIUM MARINUM INFECTION
  15. CIPROFLOXACIN [Concomitant]
     Indication: MYCOBACTERIUM MARINUM INFECTION

REACTIONS (8)
  - ASTHENIA [None]
  - DYSPHAGIA [None]
  - MYCOBACTERIUM MARINUM INFECTION [None]
  - NOCARDIOSIS [None]
  - ORAL PAIN [None]
  - RASH [None]
  - STAPHYLOCOCCAL INFECTION [None]
  - SUPERINFECTION [None]
